FAERS Safety Report 10621789 (Version 2)
Quarter: 2014Q4

REPORT INFORMATION
  Report Type: Spontaneous
  Country: US (occurrence: US)
  Receive Date: 20141203
  Receipt Date: 20141204
  Transmission Date: 20150529
  Serious: No
  Sender: FDA-Public Use
  Company Number: US-PFIZER INC-2014329361

PATIENT
  Age: 75 Year
  Sex: Female
  Weight: 66 kg

DRUGS (11)
  1. ATENOLOL. [Concomitant]
     Active Substance: ATENOLOL
     Dosage: 75 MG, (ONE AND ONE-HALF 50 MG TABLET),DAILY
     Route: 048
  2. SPIRIVA [Concomitant]
     Active Substance: TIOTROPIUM BROMIDE MONOHYDRATE
     Dosage: 1 DF, 1X/DAY(18 MCG CAPSULE INHALED, 1X/DAY)
  3. HYDROCHLOROTHIAZIDE. [Concomitant]
     Active Substance: HYDROCHLOROTHIAZIDE
     Dosage: 25 MG, DAILY
     Route: 048
  4. LOSARTAN [Concomitant]
     Active Substance: LOSARTAN
     Dosage: 100 MG, DAILY
     Route: 048
  5. CITALOPRAM [Concomitant]
     Active Substance: CITALOPRAM HYDROBROMIDE
     Indication: DEPRESSION
     Dosage: 20 MG, DAILY
     Route: 048
  6. ADVAIR HFA [Concomitant]
     Active Substance: FLUTICASONE PROPIONATE\SALMETEROL XINAFOATE
     Dosage: 250 MG INHALED, 2X/DAY
  7. SIMVASTATIN. [Concomitant]
     Active Substance: SIMVASTATIN
     Dosage: 30 MG (ONE AND ONE-HALF 20 MG TABLET),DAILY
     Route: 048
  8. PREMARIN [Suspect]
     Active Substance: ESTROGENS, CONJUGATED
     Indication: URINARY INCONTINENCE
     Dosage: 1 G, 1X/DAY
     Route: 067
     Dates: start: 20141125
  9. AMLODIPINE [Concomitant]
     Active Substance: AMLODIPINE BESYLATE
     Dosage: 2.5 MG, DAILY
     Route: 048
  10. PROAIR /00972202/ [Concomitant]
     Active Substance: FLUTICASONE PROPIONATE
     Dosage: UNK INHALED, 4X/DAY
  11. BABY ASPIRIN [Concomitant]
     Active Substance: ASPIRIN
     Indication: ISCHAEMIC HEART DISEASE PROPHYLAXIS
     Route: 048

REACTIONS (3)
  - Product use issue [Unknown]
  - Breast pain [Not Recovered/Not Resolved]
  - Pain in extremity [Not Recovered/Not Resolved]

NARRATIVE: CASE EVENT DATE: 20141125
